FAERS Safety Report 14479094 (Version 1)
Quarter: 2018Q1

REPORT INFORMATION
  Report Type: Spontaneous
  Country: GB (occurrence: GB)
  Receive Date: 20180202
  Receipt Date: 20180202
  Transmission Date: 20180509
  Serious: Yes (Other)
  Sender: FDA-Public Use
  Company Number: GB-REGULIS-2041267

PATIENT
  Age: 2 Day
  Sex: Male

DRUGS (1)
  1. METHYLENE BLUE. [Suspect]
     Active Substance: METHYLENE BLUE
     Indication: SURGERY
     Route: 065

REACTIONS (4)
  - Off label use [Unknown]
  - Chromaturia [Unknown]
  - Haemolytic anaemia [Recovered/Resolved]
  - Skin discolouration [Unknown]
